FAERS Safety Report 5965619-5 (Version None)
Quarter: 2008Q4

REPORT INFORMATION
  Report Type: 
  Country: None (occurrence: None)
  Receive Date: 20081125
  Receipt Date: 20081114
  Transmission Date: 20090506
  Serious: Yes (Death, Other)
  Sender: FDA-Public Use
  Company Number: BE-JNJFOC-20070501727

PATIENT
  Age: 23 Year
  Sex: Male

DRUGS (2)
  1. INFLIXIMAB [Suspect]
     Indication: INFLAMMATORY BOWEL DISEASE
     Dosage: 21 INFUSIONS ON UNSPECIFIED DATES.
     Route: 042
  2. AZATHIOPRINE [Concomitant]

REACTIONS (2)
  - BILE DUCT CANCER [None]
  - METASTATIC NEOPLASM [None]
